FAERS Safety Report 17885677 (Version 3)
Quarter: 2021Q1

REPORT INFORMATION
  Report Type: Spontaneous
  Country: US (occurrence: US)
  Receive Date: 20200611
  Receipt Date: 20210322
  Transmission Date: 20210419
  Serious: Yes (Other)
  Sender: FDA-Public Use
  Company Number: US-GILEAD-2020-0470586

PATIENT
  Age: 53 Year
  Sex: Male
  Weight: 86.17 kg

DRUGS (58)
  1. ATRIPLA [Suspect]
     Active Substance: EFAVIRENZ\EMTRICITABINE\TENOFOVIR DISOPROXIL FUMARATE
     Indication: HIV INFECTION
     Route: 048
  2. ADDERALL [Concomitant]
     Active Substance: AMPHETAMINE ASPARTATE\AMPHETAMINE SULFATE\DEXTROAMPHETAMINE SACCHARATE\DEXTROAMPHETAMINE SULFATE
  3. ALTABAX [Concomitant]
     Active Substance: RETAPAMULIN
  4. CLINDAMYCIN. [Concomitant]
     Active Substance: CLINDAMYCIN
  5. FINASTERIDE. [Concomitant]
     Active Substance: FINASTERIDE
  6. LOTEMAX [Concomitant]
     Active Substance: LOTEPREDNOL ETABONATE
  7. VIREAD [Suspect]
     Active Substance: TENOFOVIR DISOPROXIL FUMARATE
     Indication: HIV INFECTION
     Route: 048
  8. DESCOVY [Concomitant]
     Active Substance: EMTRICITABINE\TENOFOVIR ALAFENAMIDE FUMARATE
  9. BIKTARVY [Concomitant]
     Active Substance: BICTEGRAVIR SODIUM\EMTRICITABINE\TENOFOVIR ALAFENAMIDE FUMARATE
  10. NORVIR [Concomitant]
     Active Substance: RITONAVIR
  11. BACTROBAN [Concomitant]
     Active Substance: MUPIROCIN\MUPIROCIN CALCIUM
  12. CYCLOBENZAPRINE. [Concomitant]
     Active Substance: CYCLOBENZAPRINE
  13. MORPHINE SULFATE. [Concomitant]
     Active Substance: MORPHINE SULFATE
  14. PREVNAR [Concomitant]
     Active Substance: PNEUMOCOCCAL 7-VALENT CONJUGATE VACCINE (DIPHTHERIA CRM197 PROTEIN)
  15. PROAIR HFA [Concomitant]
     Active Substance: ALBUTEROL SULFATE
  16. TAMIFLU [Concomitant]
     Active Substance: OSELTAMIVIR PHOSPHATE
  17. VIRTUSSIN AC [Concomitant]
     Active Substance: CODEINE PHOSPHATE\GUAIFENESIN
  18. REYATAZ [Concomitant]
     Active Substance: ATAZANAVIR SULFATE
  19. RISEDRONATE SODIUM. [Concomitant]
     Active Substance: RISEDRONATE SODIUM
  20. RITONAVIR. [Concomitant]
     Active Substance: RITONAVIR
  21. VALACYCLOVIR [Concomitant]
     Active Substance: VALACYCLOVIR HYDROCHLORIDE
  22. ACANYA [Concomitant]
     Active Substance: BENZOYL PEROXIDE\CLINDAMYCIN PHOSPHATE
  23. FENTANYL. [Concomitant]
     Active Substance: FENTANYL
  24. MUPIROCIN. [Concomitant]
     Active Substance: MUPIROCIN
  25. ONDANSETRON [Concomitant]
     Active Substance: ONDANSETRON
  26. PREDNISONE. [Concomitant]
     Active Substance: PREDNISONE
  27. VITAMIN D [VITAMIN D NOS] [Concomitant]
     Active Substance: VITAMIN D NOS
  28. TRUVADA [Suspect]
     Active Substance: EMTRICITABINE\TENOFOVIR DISOPROXIL FUMARATE
     Dosage: UNK
     Route: 048
     Dates: start: 200609, end: 201705
  29. ACTONEL [Concomitant]
     Active Substance: RISEDRONATE SODIUM
  30. ACYCLOVIR [ACICLOVIR] [Concomitant]
     Active Substance: ACYCLOVIR
  31. CEFDINIR. [Concomitant]
     Active Substance: CEFDINIR
  32. DIPHENHYDRAMINE. [Concomitant]
     Active Substance: DIPHENHYDRAMINE
  33. HYDROCODONE BITARTRATE AND CHLORPHENIRAMINE MALEATE [Concomitant]
     Active Substance: CHLORPHENIRAMINE MALEATE\HYDROCODONE BITARTRATE
  34. TRIAMTERENE. [Concomitant]
     Active Substance: TRIAMTERENE
  35. TRUVADA [Suspect]
     Active Substance: EMTRICITABINE\TENOFOVIR DISOPROXIL FUMARATE
     Indication: HIV INFECTION
     Dosage: UNK
     Route: 048
     Dates: start: 200501, end: 201603
  36. ANDRODERM [Concomitant]
     Active Substance: TESTOSTERONE
  37. AZELASTINE. [Concomitant]
     Active Substance: AZELASTINE HYDROCHLORIDE
  38. BUPROPION. [Concomitant]
     Active Substance: BUPROPION
  39. CITALOPRAM [Concomitant]
     Active Substance: CITALOPRAM HYDROBROMIDE
  40. CLARITHROMYCIN. [Concomitant]
     Active Substance: CLARITHROMYCIN
  41. DICLOFENAC SODIUM. [Concomitant]
     Active Substance: DICLOFENAC SODIUM
  42. FLUTICASONE. [Concomitant]
     Active Substance: FLUTICASONE
  43. HYDROCHLOROTHIAZIDE. [Concomitant]
     Active Substance: HYDROCHLOROTHIAZIDE
  44. MECLIZINE HCL [Concomitant]
     Active Substance: MECLIZINE HYDROCHLORIDE
  45. PROLIA [Concomitant]
     Active Substance: DENOSUMAB
  46. SERTRALINE [Concomitant]
     Active Substance: SERTRALINE HYDROCHLORIDE
  47. ANTIPYRINE + BENZOCAINE [Concomitant]
  48. ATAZANAVIR. [Concomitant]
     Active Substance: ATAZANAVIR
  49. BENZONATATE. [Concomitant]
     Active Substance: BENZONATATE
  50. HYDROCODONE BITARTRATE AND ACETAMINOPHEN [Concomitant]
     Active Substance: ACETAMINOPHEN\HYDROCODONE BITARTRATE
  51. HYDROCORTISONE. [Concomitant]
     Active Substance: HYDROCORTISONE
  52. LISINOPRIL. [Concomitant]
     Active Substance: LISINOPRIL
  53. LORAZEPAM. [Concomitant]
     Active Substance: LORAZEPAM
  54. AZITHROMYCIN ANHYDROUS. [Concomitant]
     Active Substance: AZITHROMYCIN ANHYDROUS
  55. EVOTAZ [Concomitant]
     Active Substance: ATAZANAVIR SULFATE\COBICISTAT
  56. FORTEO [Concomitant]
     Active Substance: TERIPARATIDE
  57. PROPECIA [Concomitant]
     Active Substance: FINASTERIDE
  58. ZOLPIDEM [Concomitant]
     Active Substance: ZOLPIDEM TARTRATE

REACTIONS (11)
  - End stage renal disease [Unknown]
  - Tibia fracture [Recovered/Resolved]
  - Anhedonia [Unknown]
  - Pain [Unknown]
  - Multiple fractures [Not Recovered/Not Resolved]
  - Osteoporosis [Not Recovered/Not Resolved]
  - Anxiety [Unknown]
  - Bone density decreased [Not Recovered/Not Resolved]
  - Osteopenia [Unknown]
  - Depression [Not Recovered/Not Resolved]
  - Emotional distress [Unknown]

NARRATIVE: CASE EVENT DATE: 2009
